FAERS Safety Report 4430672-7 (Version None)
Quarter: 2004Q3

REPORT INFORMATION
  Report Type: 
  Country: None (occurrence: None)
  Receive Date: 20040721
  Receipt Date: 20040402
  Transmission Date: 20050211
  Serious: Yes (Other)
  Sender: FDA-Public Use
  Company Number: WAES 0404USA01190

PATIENT
  Age: 50 Year
  Sex: Female

DRUGS (1)
  1. VIOXX [Suspect]
     Indication: FIBROMYALGIA
     Dosage: 25 MG/DAILY/PO
     Route: 048
     Dates: end: 20030101

REACTIONS (2)
  - GASTROENTERITIS VIRAL [None]
  - RENAL FAILURE ACUTE [None]
